FAERS Safety Report 22203314 (Version 1)
Quarter: 2023Q2

REPORT INFORMATION
  Report Type: Spontaneous
  Country: US (occurrence: US)
  Receive Date: 20230412
  Receipt Date: 20230412
  Transmission Date: 20230721
  Serious: Yes (Life-Threatening, Hospitalization, Other)
  Sender: FDA-Public Use
  Company Number: US-MLMSERVICE-20200224-2183666-1

PATIENT
  Age: 23 Year
  Sex: Female

DRUGS (2)
  1. IMODIUM [Suspect]
     Active Substance: LOPERAMIDE HYDROCHLORIDE
     Indication: Substance use
     Dosage: AFTER EXTUBATION, SHE ADMITTED TO TAKING UP TO 80 TABLETS OF LOPERAMIDE 2 MG (160 MG TOTAL) AT A ...
     Route: 048
  2. IMODIUM [Suspect]
     Active Substance: LOPERAMIDE HYDROCHLORIDE
     Dosage: AFTER EXTUBATION, SHE ADMITTED TO TAKING UP TO 80 TABLETS OF LOPERAMIDE 2 MG (160 MG TOTAL) AT A ...
     Route: 048

REACTIONS (11)
  - Intentional overdose [Recovered/Resolved]
  - Stress cardiomyopathy [Recovered/Resolved]
  - Drug abuse [Recovered/Resolved]
  - Cardiogenic shock [Recovered/Resolved]
  - Ventricular fibrillation [Recovered/Resolved]
  - Ventricular hypokinesia [Recovered/Resolved]
  - Ejection fraction decreased [Recovered/Resolved]
  - Toxicity to various agents [Recovered/Resolved]
  - Cardiac arrest [Recovered/Resolved]
  - Torsade de pointes [Recovered/Resolved]
  - Ventricular tachycardia [Recovered/Resolved]
